FAERS Safety Report 6123395-X (Version None)
Quarter: 2009Q1

REPORT INFORMATION
  Report Type: 
  Country: None (occurrence: None)
  Receive Date: 20090318
  Receipt Date: 20090310
  Transmission Date: 20090719
  Serious: Yes (Hospitalization, Other)
  Sender: FDA-Public Use
  Company Number: US-ABBOTT-09P-163-0561826-00

PATIENT
  Sex: Female
  Weight: 81.72 kg

DRUGS (5)
  1. HUMIRA [Suspect]
     Indication: RHEUMATOID ARTHRITIS
     Route: 058
     Dates: start: 20090223, end: 20090303
  2. PLAQUENIL [Concomitant]
     Indication: RHEUMATOID ARTHRITIS
  3. SINGULAIR [Concomitant]
     Indication: HYPERSENSITIVITY
  4. ALLERGY PILLS [Concomitant]
     Indication: HYPERSENSITIVITY
  5. THYROID TAB [Concomitant]
     Indication: GOITRE

REACTIONS (12)
  - CARDIAC DISORDER [None]
  - CEREBROVASCULAR ACCIDENT [None]
  - COUGH [None]
  - EYE PAIN [None]
  - HEADACHE [None]
  - HYPOTENSION [None]
  - LOSS OF CONSCIOUSNESS [None]
  - NASOPHARYNGITIS [None]
  - PHOTOPHOBIA [None]
  - PYREXIA [None]
  - VISUAL IMPAIRMENT [None]
  - WHEEZING [None]
